FAERS Safety Report 8911626 (Version 2)
Quarter: 2014Q4

REPORT INFORMATION
  Report Type: Spontaneous
  Country: US (occurrence: US)
  Receive Date: 20121115
  Receipt Date: 20141103
  Transmission Date: 20150529
  Serious: Yes (Hospitalization, Other)
  Sender: FDA-Public Use
  Company Number: US-ASTRAZENECA-2010SE36430

PATIENT
  Age: 68 Year
  Sex: Female
  Weight: 84.8 kg

DRUGS (34)
  1. SYMBICORT [Suspect]
     Active Substance: BUDESONIDE\FORMOTEROL FUMARATE DIHYDRATE
     Indication: ASTHMA
     Dosage: 160/4.5 MCG, 2 PUFFS, TWO TIMES DAY
     Route: 055
     Dates: start: 20110321
  2. A-HYDROCORT [Concomitant]
     Active Substance: HYDROCORTISONE SODIUM SUCCINATE
  3. VITAMIN E [Concomitant]
     Active Substance: .ALPHA.-TOCOPHEROL
     Dosage: 1000 IU
     Route: 048
  4. ADVAIR HFA [Suspect]
     Active Substance: FLUTICASONE PROPIONATE\SALMETEROL XINAFOATE
     Route: 065
  5. PREDNISONE. [Suspect]
     Active Substance: PREDNISONE
     Route: 048
  6. PREDNISONE. [Suspect]
     Active Substance: PREDNISONE
     Route: 048
  7. ALBUTEROL. [Concomitant]
     Active Substance: ALBUTEROL
  8. WELLBUTRIN [Concomitant]
     Active Substance: BUPROPION HYDROCHLORIDE
     Route: 048
  9. LEVOTHYROXINE [Concomitant]
     Active Substance: LEVOTHYROXINE
     Indication: HYPOTHYROIDISM
     Route: 048
  10. BUPROPION [Concomitant]
     Active Substance: BUPROPION
     Indication: DEPRESSION
  11. CORTEF [Concomitant]
     Active Substance: HYDROCORTISONE
     Route: 048
  12. ZANTAC [Concomitant]
     Active Substance: RANITIDINE HYDROCHLORIDE
  13. SYMBICORT [Suspect]
     Active Substance: BUDESONIDE\FORMOTEROL FUMARATE DIHYDRATE
     Indication: CHRONIC OBSTRUCTIVE PULMONARY DISEASE
     Dosage: 160/4.5 MCG, 2 PUFFS, TWO TIMES DAY
     Route: 055
  14. SYMBICORT [Suspect]
     Active Substance: BUDESONIDE\FORMOTEROL FUMARATE DIHYDRATE
     Indication: ASTHMA
     Dosage: 160/4.5 MCG, 2 PUFFS, TWO TIMES DAY
     Route: 055
  15. SYMBICORT [Suspect]
     Active Substance: BUDESONIDE\FORMOTEROL FUMARATE DIHYDRATE
     Indication: CHRONIC OBSTRUCTIVE PULMONARY DISEASE
     Dosage: 160/4.5 MCG, 2 PUFFS, TWO TIMES DAY
     Route: 055
     Dates: start: 20110321
  16. PREDNISONE. [Suspect]
     Active Substance: PREDNISONE
     Route: 048
  17. SPIRIVA [Concomitant]
     Active Substance: TIOTROPIUM BROMIDE MONOHYDRATE
     Indication: CHRONIC OBSTRUCTIVE PULMONARY DISEASE
  18. ALPRAZOLAM. [Concomitant]
     Active Substance: ALPRAZOLAM
     Indication: INSOMNIA
  19. COZAAR [Concomitant]
     Active Substance: LOSARTAN POTASSIUM
     Route: 048
  20. ASA/TYLENOL/CAFFEINE [Concomitant]
  21. SIMETHICONE [Concomitant]
     Active Substance: DIMETHICONE\SILICON DIOXIDE\SIMETHICONE
     Indication: FLATULENCE
     Dosage: 2-3 Q6 PRN
     Route: 048
  22. MUCINEX [Concomitant]
     Active Substance: GUAIFENESIN
     Indication: SECRETION DISCHARGE
  23. CLARITIN/CLARITIN D [Concomitant]
     Indication: HYPERSENSITIVITY
  24. VITAMIN B COMPLEX [Concomitant]
     Active Substance: CYANOCOBALAMIN\DEXPANTHENOL\NIACINAMIDE\PYRIDOXINE HYDROCHLORIDE\RIBOFLAVIN 5^-PHOSPHATE SODIUM\THIAMINE HYDROCHLORIDE\VITAMIN B COMPLEX
     Route: 048
  25. CHROMIUM PICOLINATE [Concomitant]
     Active Substance: CHROMIUM PICOLINATE
     Route: 048
  26. IMODIUM A-D [Concomitant]
     Active Substance: LOPERAMIDE HYDROCHLORIDE
     Route: 048
  27. PROVENTIL [Concomitant]
     Active Substance: ALBUTEROL
     Dosage: 2 PUFFS, Q 4-6 HRS AS NEEDED
     Route: 055
  28. XANAX [Concomitant]
     Active Substance: ALPRAZOLAM
     Indication: INSOMNIA
     Dosage: 1-2 QHS, PRN
     Route: 048
  29. COMBIVENT [Concomitant]
     Active Substance: ALBUTEROL SULFATE\IPRATROPIUM BROMIDE
     Indication: CHRONIC OBSTRUCTIVE PULMONARY DISEASE
     Route: 055
  30. BUPROPION [Concomitant]
     Active Substance: BUPROPION
     Indication: ANXIETY
  31. XOPENEX [Concomitant]
     Active Substance: LEVALBUTEROL HYDROCHLORIDE
  32. MULTIVITAMINS [Concomitant]
     Active Substance: VITAMINS
  33. VITAMIN D [Concomitant]
     Active Substance: CHOLECALCIFEROL
     Dosage: 50000 IU WEEKLY
     Route: 048
  34. OXYGEN. [Concomitant]
     Active Substance: OXYGEN

REACTIONS (32)
  - Thoracic vertebral fracture [Recovering/Resolving]
  - Hypoxia [Unknown]
  - Weight decreased [Not Recovered/Not Resolved]
  - Crying [Recovered/Resolved]
  - Fatigue [Unknown]
  - Lung disorder [Unknown]
  - Herpes zoster [Unknown]
  - Drug dose omission [Unknown]
  - Drug ineffective [Unknown]
  - Peripheral swelling [Unknown]
  - Eructation [Unknown]
  - Cardiomyopathy [Unknown]
  - Cardiac failure congestive [Unknown]
  - Tongue haemorrhage [Unknown]
  - Upper respiratory tract infection [Not Recovered/Not Resolved]
  - Influenza [Recovered/Resolved]
  - Ejection fraction decreased [Unknown]
  - Abdominal distension [Unknown]
  - Asthma [Unknown]
  - Intervertebral disc degeneration [Unknown]
  - Respiratory tract congestion [Unknown]
  - Productive cough [Recovered/Resolved]
  - Chronic obstructive pulmonary disease [Recovered/Resolved with Sequelae]
  - Vision blurred [Unknown]
  - Flatulence [Unknown]
  - Fall [Recovering/Resolving]
  - Non-cardiac chest pain [Unknown]
  - Dyspnoea [Unknown]
  - Joint swelling [Unknown]
  - Obesity [Unknown]
  - Arthralgia [Recovering/Resolving]
  - Back pain [Recovering/Resolving]

NARRATIVE: CASE EVENT DATE: 2011
